FAERS Safety Report 19427066 (Version 2)
Quarter: 2021Q3

REPORT INFORMATION
  Report Type: Spontaneous
  Country: CA (occurrence: CA)
  Receive Date: 20210616
  Receipt Date: 20210713
  Transmission Date: 20211014
  Serious: Yes (Life-Threatening, Other)
  Sender: FDA-Public Use
  Company Number: CA-MALLINCKRODT PHARMACEUTICALS-T202102627

PATIENT
  Sex: Male

DRUGS (2)
  1. INOMAX [Suspect]
     Active Substance: NITRIC OXIDE
     Indication: COVID-19
     Dosage: 40 PPM
     Route: 065
     Dates: start: 20210514, end: 20210520
  2. INOMAX [Suspect]
     Active Substance: NITRIC OXIDE
     Dosage: 10 PPM
     Route: 065
     Dates: start: 20210521, end: 20210529

REACTIONS (5)
  - Bradycardia [Recovered/Resolved]
  - Oxygen saturation decreased [Recovered/Resolved]
  - Product use in unapproved indication [Unknown]
  - Product use issue [Unknown]
  - Cardiac arrest [Recovered/Resolved]

NARRATIVE: CASE EVENT DATE: 2021
